FAERS Safety Report 7052534-1 (Version None)
Quarter: 2010Q4

REPORT INFORMATION
  Report Type: 
  Country: None (occurrence: None)
  Receive Date: 20101019
  Receipt Date: 20101012
  Transmission Date: 20110411
  Serious: Yes (Disabling)
  Sender: FDA-Public Use
  Company Number: CH-BAXTER-2010BH025670

PATIENT
  Age: 76 Year
  Sex: Female
  Weight: 70 kg

DRUGS (8)
  1. CYCLOPHOSPHAMIDE [Suspect]
     Indication: BREAST CANCER
     Route: 041
  2. ZOMETA [Suspect]
     Indication: BREAST CANCER
     Route: 041
     Dates: start: 20071201
  3. PACLITAXEL [Suspect]
     Indication: BREAST CANCER
     Route: 041
  4. EPIRUBICIN HYDROCHLORIDE [Suspect]
     Indication: BREAST CANCER
     Route: 041
  5. CAPECITABINE [Suspect]
     Indication: BREAST CANCER
     Route: 065
  6. TAMOXIFEN CITRATE [Concomitant]
     Indication: BREAST CANCER
     Route: 048
  7. FEMARA [Concomitant]
     Indication: BREAST CANCER
     Route: 048
  8. FASLODEX [Concomitant]
     Indication: BREAST CANCER
     Route: 030

REACTIONS (1)
  - OSTEONECROSIS [None]
